FAERS Safety Report 5436707-7 (Version None)
Quarter: 2007Q3

REPORT INFORMATION
  Report Type: 
  Country: None (occurrence: None)
  Receive Date: 20070831
  Receipt Date: 20070823
  Transmission Date: 20080115
  Serious: Yes (Hospitalization)
  Sender: FDA-Public Use
  Company Number: BR-JNJFOC-20070805513

PATIENT
  Age: 43 Year
  Sex: Male

DRUGS (3)
  1. PREZISTA [Suspect]
     Indication: ACQUIRED IMMUNODEFICIENCY SYNDROME
     Dosage: PREZISTA WAS IMPORTED FROM AN UNSPECIFIED COUNTRY
     Route: 048
  2. FUZEO [Suspect]
     Indication: ACQUIRED IMMUNODEFICIENCY SYNDROME
     Route: 065
  3. UNSPECIFIED ANTIDEPRESSANTS [Concomitant]
     Indication: MENTAL DISORDER
     Route: 065

REACTIONS (1)
  - BUNDLE BRANCH BLOCK [None]
